FAERS Safety Report 10882892 (Version 1)
Quarter: 2015Q1

REPORT INFORMATION
  Report Type: Spontaneous
  Country: US (occurrence: US)
  Receive Date: 20150303
  Receipt Date: 20150303
  Transmission Date: 20150721
  Serious: No
  Sender: FDA-Public Use
  Company Number: US-PFIZER INC-2015074679

PATIENT
  Age: 59 Year
  Sex: Male
  Weight: 79.37 kg

DRUGS (2)
  1. VIAGRA [Suspect]
     Active Substance: SILDENAFIL CITRATE
     Indication: ERECTILE DYSFUNCTION
     Dosage: 100 MG, UNK (TWO TABLETS OF 50 MG)
  2. VIAGRA [Suspect]
     Active Substance: SILDENAFIL CITRATE
     Indication: POST PROCEDURAL COMPLICATION
     Dosage: 50 MG, UNK

REACTIONS (1)
  - Drug ineffective [Recovered/Resolved]
